FAERS Safety Report 7815533-5 (Version None)
Quarter: 2011Q4

REPORT INFORMATION
  Report Type: 
  Country: None (occurrence: None)
  Receive Date: 20111014
  Receipt Date: 20111006
  Transmission Date: 20120403
  Serious: Yes (Hospitalization, Other)
  Sender: FDA-Public Use
  Company Number: JP-CELGENEUS-087-21660-11051896

PATIENT
  Age: 52 Year
  Sex: Female

DRUGS (5)
  1. AMARYL [Concomitant]
     Indication: DIABETES MELLITUS
     Dosage: .5 MILLIGRAM
     Route: 048
     Dates: start: 20110316
  2. ABRAXANE [Suspect]
     Indication: BREAST CANCER
     Dosage: 350 MILLIGRAM
     Route: 041
     Dates: start: 20110420, end: 20110420
  3. ALDACTONE [Concomitant]
     Dosage: 25 MILLIGRAM
     Route: 048
     Dates: start: 20110406
  4. LASIX [Concomitant]
     Dosage: 40 MILLIGRAM
     Route: 048
     Dates: start: 20110406
  5. URSO 250 [Concomitant]
     Indication: HYPERBILIRUBINAEMIA
     Dosage: 600 MILLIGRAM
     Route: 048
     Dates: start: 20110224

REACTIONS (6)
  - ARTHRALGIA [None]
  - FEBRILE NEUTROPENIA [None]
  - MYALGIA [None]
  - HYPERBILIRUBINAEMIA [None]
  - STOMATITIS [None]
  - HYPOAESTHESIA ORAL [None]
